FAERS Safety Report 5498679-9 (Version None)
Quarter: 2007Q4

REPORT INFORMATION
  Report Type: 
  Country: None (occurrence: None)
  Receive Date: 20071024
  Receipt Date: 20071024
  Transmission Date: 20080405
  Serious: Yes (Death)
  Sender: FDA-Public Use
  Company Number: None

PATIENT
  Age: 43 Year
  Sex: Female
  Weight: 106 kg

DRUGS (1)
  1. HUMIRA [Suspect]
     Indication: RHEUMATOID ARTHRITIS
     Dosage: 40 MG ONCE WEEKLY SQ
     Route: 058

REACTIONS (4)
  - CIRCULATORY COLLAPSE [None]
  - GASTROENTERITIS [None]
  - SEPTIC SHOCK [None]
  - URINARY TRACT INFECTION [None]
